FAERS Safety Report 25089717 (Version 1)
Quarter: 2025Q1

REPORT INFORMATION
  Report Type: Spontaneous
  Country: US (occurrence: None)
  Receive Date: 20250317
  Receipt Date: 20250317
  Transmission Date: 20250408
  Serious: Yes (Other)
  Sender: FDA-CTU
  Company Number: None

PATIENT
  Age: 58 Year
  Sex: Female
  Weight: 87.5 kg

DRUGS (1)
  1. HIZENTRA [Suspect]
     Active Substance: HUMAN IMMUNOGLOBULIN G
     Indication: Behcet^s syndrome
     Route: 058
     Dates: start: 20190107, end: 20250314

REACTIONS (17)
  - Rash [None]
  - Rash [None]
  - Rash [None]
  - Pruritus [None]
  - Confusional state [None]
  - Arthralgia [None]
  - Pain in extremity [None]
  - Pain in extremity [None]
  - Arthralgia [None]
  - Fall [None]
  - Loss of consciousness [None]
  - Head injury [None]
  - Dizziness [None]
  - Muscle spasms [None]
  - Migraine [None]
  - Dry skin [None]
  - Dry mouth [None]

NARRATIVE: CASE EVENT DATE: 20250314
